FAERS Safety Report 21891095 (Version 2)
Quarter: 2023Q1

REPORT INFORMATION
  Report Type: Other
  Country: CA (occurrence: CA)
  Receive Date: 20230120
  Receipt Date: 20230131
  Transmission Date: 20230417
  Serious: Yes (Hospitalization)
  Sender: FDA-Public Use
  Company Number: CA-ALVOGEN-2023088981

PATIENT
  Sex: Female

DRUGS (2)
  1. NITROFURANTOIN [Suspect]
     Active Substance: NITROFURANTOIN
     Indication: Urinary tract infection
     Dosage: COMPLETED 5 DAYS OF A 7-DAY COURSE OF TREATMENT
  2. Travoprost ophthalmic drops [Concomitant]
     Indication: Product used for unknown indication

REACTIONS (5)
  - Haemolysis [Recovered/Resolved]
  - Normocytic anaemia [Recovered/Resolved]
  - Hypotension [Recovered/Resolved]
  - Tachycardia [Recovered/Resolved]
  - Hyponatraemia [Recovered/Resolved]
